FAERS Safety Report 8919169 (Version 2)
Quarter: 2012Q4

REPORT INFORMATION
  Report Type: Report from Study
  Country: JP (occurrence: JP)
  Receive Date: 20121121
  Receipt Date: 20121226
  Transmission Date: 20130627
  Serious: Yes (Hospitalization, Other)
  Sender: FDA-Public Use
  Company Number: JP-ASTELLAS-2012US011278

PATIENT
  Age: 65 Year
  Sex: Female

DRUGS (16)
  1. ERLOTINIB TABLET [Suspect]
     Indication: ADENOCARCINOMA PANCREAS
     Dosage: 100 mg, UID/QD
     Route: 048
     Dates: start: 20120717, end: 20120814
  2. GEMCITABINE [Suspect]
     Indication: ADENOCARCINOMA PANCREAS
     Dosage: 1000 mg/m2, UID/QD
     Route: 042
     Dates: start: 20120717, end: 20120717
  3. GEMCITABINE [Suspect]
     Dosage: 1000 mg/m2, UID/QD
     Route: 042
     Dates: start: 20120724, end: 20120724
  4. GEMCITABINE [Suspect]
     Dosage: 1000 mg/m2, UID/QD
     Route: 042
     Dates: start: 20120731, end: 20120731
  5. GASMOTIN [Concomitant]
     Indication: PRODUCT USED FOR UNKNOWN INDICATION
     Dosage: 15 mg, UID/QD
     Route: 048
  6. ZANTAC [Concomitant]
     Indication: PRODUCT USED FOR UNKNOWN INDICATION
     Dosage: 150 mg, UID/QD
     Route: 048
     Dates: start: 20120718, end: 20120829
  7. ZYPREXA [Concomitant]
     Indication: PRODUCT USED FOR UNKNOWN INDICATION
     Dosage: 5 mg, UID/QD
     Route: 048
     Dates: end: 20120718
  8. ZYPREXA [Concomitant]
     Dosage: 2.5 mg, UID/QD
     Route: 048
     Dates: start: 20120719, end: 20120721
  9. ZYPREXA [Concomitant]
     Dosage: 5 mg, UID/QD
     Route: 048
     Dates: start: 20120722
  10. FENTOS [Concomitant]
     Indication: PRODUCT USED FOR UNKNOWN INDICATION
     Dosage: 2 mg, UID/QD
     Route: 062
     Dates: end: 20120817
  11. FENTOS [Concomitant]
     Dosage: 3 mg, UID/QD
     Route: 062
     Dates: start: 20120818
  12. OXINORM                            /00045603/ [Concomitant]
     Indication: PRODUCT USED FOR UNKNOWN INDICATION
     Dosage: 2.5-5.0 mg single use
     Route: 048
  13. PRIMPERAN [Concomitant]
     Indication: PRODUCT USED FOR UNKNOWN INDICATION
     Dosage: 5 mg, Total Dose
     Route: 048
  14. DEXART [Concomitant]
     Indication: PRODUCT USED FOR UNKNOWN INDICATION
     Dosage: 6.6 mg, when gemcitabine is administered.
     Route: 042
  15. LOXONIN [Concomitant]
     Indication: PRODUCT USED FOR UNKNOWN INDICATION
     Dosage: 60 mg, UID/QD
     Route: 048
     Dates: start: 20120717, end: 20120813
  16. PARIET [Concomitant]
     Indication: PRODUCT USED FOR UNKNOWN INDICATION
     Dosage: 10 mg, UID/QD
     Route: 048
     Dates: start: 20120823

REACTIONS (12)
  - Drug ineffective [Unknown]
  - Pulmonary embolism [Recovering/Resolving]
  - Pneumocystis jiroveci pneumonia [Recovering/Resolving]
  - Metastases to liver [Unknown]
  - Dysgeusia [Recovered/Resolved]
  - Nausea [Recovered/Resolved]
  - Rash [Recovered/Resolved]
  - Urinary tract infection [Recovered/Resolved]
  - Fibrin D dimer increased [Unknown]
  - Fibrin degradation products increased [Unknown]
  - Anxiety disorder [Recovered/Resolved]
  - Venous thrombosis limb [Recovering/Resolving]
